FAERS Safety Report 12517482 (Version 1)
Quarter: 2016Q2

REPORT INFORMATION
  Report Type: Spontaneous
  Country: TR (occurrence: TR)
  Receive Date: 20160630
  Receipt Date: 20160630
  Transmission Date: 20160815
  Serious: Yes (Life-Threatening, Hospitalization)
  Sender: FDA-Public Use
  Company Number: TR-FTV20150515-01_FDAV1

PATIENT
  Sex: Female
  Weight: 110 kg

DRUGS (2)
  1. ECOPIRIN [Concomitant]
     Active Substance: ASPIRIN
  2. FACTIVE [Suspect]
     Active Substance: GEMIFLOXACIN MESYLATE
     Indication: PNEUMONIA
     Route: 048
     Dates: start: 20150306, end: 20150306

REACTIONS (3)
  - Rash erythematous [Recovering/Resolving]
  - Generalised oedema [Recovering/Resolving]
  - Laryngeal oedema [Recovering/Resolving]
